FAERS Safety Report 8578494-X (Version None)
Quarter: 2012Q3

REPORT INFORMATION
  Report Type: 
  Country: None (occurrence: None)
  Receive Date: 20120808
  Receipt Date: 20120730
  Transmission Date: 20120928
  Serious: Yes (Other)
  Sender: FDA-Public Use
  Company Number: US-JNJFOC-20120801980

PATIENT
  Sex: Female

DRUGS (4)
  1. EXTRA STRENGTH TYLENOL [Suspect]
     Indication: PAIN
     Dosage: 2 CAPLETS IN THE MORNING
     Route: 048
  2. EXTRA STRENGTH TYLENOL [Suspect]
     Indication: MYALGIA
     Dosage: 2 CAPLETS IN THE MORNING
     Route: 048
  3. TYLENOL-500 [Suspect]
     Indication: PAIN
     Dosage: 2 CAPLETS IN THE EVENING
     Route: 048
  4. TYLENOL-500 [Suspect]
     Indication: MYALGIA
     Dosage: 2 CAPLETS IN THE EVENING
     Route: 048

REACTIONS (2)
  - PRODUCT QUALITY ISSUE [None]
  - CLOSTRIDIAL INFECTION [None]
